FAERS Safety Report 7069236-8 (Version None)
Quarter: 2010Q4

REPORT INFORMATION
  Report Type: 
  Country: None (occurrence: None)
  Receive Date: 20101028
  Receipt Date: 20101019
  Transmission Date: 20110411
  Serious: No
  Sender: FDA-Public Use
  Company Number: US-B.I. PHARMACEUTICALS,INC./RIDGEFIELD-2010-BP-11729BP

PATIENT
  Sex: Male

DRUGS (2)
  1. FLOMAX [Suspect]
     Indication: BENIGN PROSTATIC HYPERPLASIA
     Dosage: 0.4 MG
     Dates: start: 20100101, end: 20100601
  2. FLOMAX [Suspect]
     Dosage: 0.8 MG
     Dates: start: 20100601

REACTIONS (5)
  - BLADDER DISORDER [None]
  - DRY MOUTH [None]
  - DYSPNOEA [None]
  - NASAL CONGESTION [None]
  - SLEEP DISORDER [None]
